FAERS Safety Report 4652068-5 (Version None)
Quarter: 2005Q2

REPORT INFORMATION
  Report Type: 
  Country: None (occurrence: None)
  Receive Date: 20050502
  Receipt Date: 20050419
  Transmission Date: 20051028
  Serious: Yes (Other)
  Sender: FDA-Public Use
  Company Number: 2005061744

PATIENT
  Sex: Male
  Weight: 90 kg

DRUGS (2)
  1. CAMPTOSAR [Suspect]
     Indication: RHABDOMYOSARCOMA RECURRENT
     Dosage: 20 MG/M*2
     Dates: start: 20050401
  2. VINCRISTINE [Concomitant]

REACTIONS (5)
  - ANXIETY [None]
  - DIARRHOEA [None]
  - DISCOMFORT [None]
  - LOCAL SWELLING [None]
  - THROMBOSIS [None]
